FAERS Safety Report 5551097-7 (Version None)
Quarter: 2007Q4

REPORT INFORMATION
  Report Type: 
  Country: None (occurrence: None)
  Receive Date: 20071212
  Receipt Date: 20071207
  Transmission Date: 20080405
  Serious: Yes (Hospitalization)
  Sender: FDA-Public Use
  Company Number: A0697937A

PATIENT
  Age: 76 Year
  Sex: Female

DRUGS (3)
  1. ADVAIR DISKUS 100/50 [Suspect]
     Indication: BRONCHITIS
     Dosage: 1PUFF TWICE PER DAY
     Route: 055
  2. FLONASE [Suspect]
     Indication: SINUS DISORDER
     Dosage: 2PUFF AT NIGHT
     Route: 045
  3. TRICOR [Concomitant]

REACTIONS (3)
  - BRONCHITIS [None]
  - LUNG INFECTION [None]
  - PNEUMONIA [None]
